APPROVED DRUG PRODUCT: ESLICARBAZEPINE ACETATE
Active Ingredient: ESLICARBAZEPINE ACETATE
Strength: 400MG
Dosage Form/Route: TABLET;ORAL
Application: A211227 | Product #002 | TE Code: AB
Applicant: TORRENT PHARMACEUTICALS LTD
Approved: Feb 27, 2024 | RLD: No | RS: No | Type: RX